FAERS Safety Report 7964550-3 (Version None)
Quarter: 2011Q4

REPORT INFORMATION
  Report Type: 
  Country: None (occurrence: None)
  Receive Date: 20111208
  Receipt Date: 20111124
  Transmission Date: 20120403
  Serious: Yes (Other)
  Sender: FDA-Public Use
  Company Number: PHHY2011AU57652

PATIENT
  Sex: Female

DRUGS (12)
  1. PROTHIADEN [Concomitant]
  2. INDAPAMIDE [Concomitant]
  3. ZANTAC [Concomitant]
  4. SCOPOLAMINE [Concomitant]
  5. TEMAZEPAM [Concomitant]
  6. SANDOSTATIN LAR [Suspect]
     Dosage: 30 MG, UNK
  7. SANDOSTATIN LAR [Suspect]
     Dosage: 20 MG, UNK
  8. KARVEA [Concomitant]
  9. SANDOSTATIN [Suspect]
     Dosage: 0.1 ML, BID
  10. SANDOSTATIN LAR [Suspect]
     Indication: ACROMEGALY
     Dosage: 30 MG, UNK
  11. ACETAMINOPHEN W/ CODEINE [Concomitant]
     Indication: PAIN
     Dosage: 3-4 TABLETS DAILY
  12. PRILOSEC [Concomitant]

REACTIONS (8)
  - NAUSEA [None]
  - MUSCLE SPASMS [None]
  - COR PULMONALE [None]
  - HEADACHE [None]
  - MYOCARDIAL INFARCTION [None]
  - PAIN [None]
  - ABDOMINAL PAIN UPPER [None]
  - VOMITING [None]
